FAERS Safety Report 8011504-7 (Version None)
Quarter: 2011Q4

REPORT INFORMATION
  Report Type: 
  Country: None (occurrence: None)
  Receive Date: 20111228
  Receipt Date: 20111222
  Transmission Date: 20120403
  Serious: No
  Sender: FDA-Public Use
  Company Number: US-PFIZER INC-2011312699

PATIENT
  Sex: Male
  Weight: 63.492 kg

DRUGS (2)
  1. NORVASC [Suspect]
     Indication: HYPERTENSION
     Dosage: 2.5 MG, DAILY
     Dates: start: 20110701
  2. LIPITOR [Concomitant]
     Indication: BLOOD CHOLESTEROL ABNORMAL
     Dosage: 5 MG, DAILY

REACTIONS (4)
  - SKIN REACTION [None]
  - PYREXIA [None]
  - RASH [None]
  - INFLUENZA [None]
